FAERS Safety Report 25627492 (Version 1)
Quarter: 2025Q3

REPORT INFORMATION
  Report Type: Spontaneous
  Country: US (occurrence: US)
  Receive Date: 20250731
  Receipt Date: 20250731
  Transmission Date: 20251020
  Serious: Yes (Other)
  Sender: DR REDDYS
  Company Number: None

PATIENT
  Age: 66 Year
  Sex: Female
  Weight: 81 kg

DRUGS (5)
  1. VALPROIC ACID [Suspect]
     Active Substance: VALPROIC ACID
     Indication: Mania
     Dosage: ON DAY 15 OF HER ADMISSION, WITH A GOAL TOTAL VALPROIC ACID LEVEL BETWEEN 50 AND 125 MG/ML
  2. VALPROIC ACID [Suspect]
     Active Substance: VALPROIC ACID
     Dosage: INCREASED TO VALPROIC ACID 500 MG TWICE DAILY, AND ON DAY 21 OF ADMISSION
  3. APIXABAN [Suspect]
     Active Substance: APIXABAN
     Indication: Pulmonary embolism
     Dosage: STARTED 2 MONTHS BEFORE PRESENTATION TO THE EMERGENCY DEPARTMENT. SHE WAS ADEQUATELY LOADED WITH API
  4. APIXABAN [Suspect]
     Active Substance: APIXABAN
     Dosage: SHE WAS ADEQUATELY LOADED WITH APIXABAN 10 MG TWICE DAILY FOR 7 DAYS
  5. LITHIUM [Concomitant]
     Active Substance: LITHIUM
     Indication: Mania

REACTIONS (2)
  - Deep vein thrombosis [Unknown]
  - Drug interaction [Unknown]
